FAERS Safety Report 18694527 (Version 1)
Quarter: 2021Q1

REPORT INFORMATION
  Report Type: Spontaneous
  Country: GB (occurrence: GB)
  Receive Date: 20210104
  Receipt Date: 20210104
  Transmission Date: 20210419
  Serious: Yes (Other)
  Sender: FDA-Public Use
  Company Number: GB-MYLANLABS-2020M1105282

PATIENT
  Age: 42 Year
  Sex: Female
  Weight: 75 kg

DRUGS (3)
  1. AUGMENTIN [Suspect]
     Active Substance: AMOXICILLIN\CLAVULANATE POTASSIUM
     Indication: PROPHYLAXIS
     Dosage: 1.2 MILLIGRAM
     Route: 042
  2. ROCURONIUM [Suspect]
     Active Substance: ROCURONIUM BROMIDE
     Indication: MUSCLE RELAXANT THERAPY
     Dosage: 35 MILLIGRAM
     Route: 042
  3. BACLOFEN. [Concomitant]
     Active Substance: BACLOFEN
     Dosage: UNK

REACTIONS (1)
  - Airway complication of anaesthesia [Recovered/Resolved]

NARRATIVE: CASE EVENT DATE: 20201129
